FAERS Safety Report 10697147 (Version 1)
Quarter: 2015Q1

REPORT INFORMATION
  Report Type: Spontaneous
  Country: US (occurrence: None)
  Receive Date: 20150107
  Receipt Date: 20150107
  Transmission Date: 20150721
  Serious: Yes (Disabling)
  Sender: FDA-Public Use
  Company Number: None

PATIENT
  Age: 46 Year
  Sex: Female
  Weight: 77.11 kg

DRUGS (1)
  1. NARDIL [Suspect]
     Active Substance: PHENELZINE SULFATE
     Indication: DEPRESSION
     Dosage: 6 PILLS PER DAY
     Route: 048

REACTIONS (7)
  - Hyperhidrosis [None]
  - Nausea [None]
  - Product substitution issue [None]
  - Product quality issue [None]
  - Dizziness [None]
  - Asthenia [None]
  - Vision blurred [None]

NARRATIVE: CASE EVENT DATE: 20040930
